FAERS Safety Report 24708519 (Version 1)
Quarter: 2024Q4

REPORT INFORMATION
  Report Type: Report from Study
  Country: ZA (occurrence: ZA)
  Receive Date: 20241207
  Receipt Date: 20241207
  Transmission Date: 20250115
  Serious: Yes (Other)
  Sender: ABBVIE
  Company Number: ZA-ABBVIE-6032409

PATIENT
  Sex: Male

DRUGS (2)
  1. OZURDEX [Suspect]
     Active Substance: DEXAMETHASONE
     Indication: Uveitis
     Dosage: TIME INTERVAL: AS NECESSARY: EVERY FOUR MONTHS, FORM STRENGTH: 0.7MG
     Route: 050
     Dates: start: 20230712, end: 20230712
  2. OZURDEX [Suspect]
     Active Substance: DEXAMETHASONE
     Indication: Retinal vein occlusion
     Dosage: TIME INTERVAL: AS NECESSARY: EVERY FOUR MONTHS, FORM STRENGTH: 0.7MG
     Route: 050
     Dates: start: 20240808

REACTIONS (3)
  - Blindness [Unknown]
  - Eye pain [Unknown]
  - Retinal oedema [Unknown]

NARRATIVE: CASE EVENT DATE: 20241104
